FAERS Safety Report 9976741 (Version 1)
Quarter: 2014Q1

REPORT INFORMATION
  Report Type: Report from Study
  Country: US (occurrence: US)
  Receive Date: 20140306
  Receipt Date: 20140306
  Transmission Date: 20141002
  Serious: No
  Sender: FDA-Public Use
  Company Number: US-ABBVIE-13P-163-1164832-00

PATIENT
  Age: 53 Year
  Sex: Female
  Weight: 88.98 kg

DRUGS (6)
  1. HUMIRA [Suspect]
     Indication: CROHN^S DISEASE
     Route: 058
     Dates: start: 201205, end: 201208
  2. HUMIRA [Suspect]
     Route: 058
     Dates: start: 201308
  3. PENTASA [Concomitant]
     Indication: CROHN^S DISEASE
  4. SYNTHROID [Concomitant]
     Indication: HYPOTHYROIDISM
  5. PROTONIX [Concomitant]
     Indication: CROHN^S DISEASE
  6. VITAMIN D [Concomitant]
     Indication: VITAMIN SUPPLEMENTATION

REACTIONS (1)
  - Diarrhoea [Recovered/Resolved]
